FAERS Safety Report 4328023-1 (Version None)
Quarter: 2004Q1

REPORT INFORMATION
  Report Type: 
  Country: None (occurrence: None)
  Receive Date: 20040325
  Receipt Date: 20040312
  Transmission Date: 20041129
  Serious: Yes (Other)
  Sender: FDA-Public Use
  Company Number: 2004204076CA

PATIENT
  Age: 34 Year
  Sex: Female
  Weight: 63.5 kg

DRUGS (1)
  1. DEPO-PROVERA [Suspect]
     Dosage: 150 MG, IST INJECTION, INTRAMUSCULAR
     Route: 030
     Dates: start: 20040218, end: 20040218

REACTIONS (2)
  - BLOOD URINE PRESENT [None]
  - METRORRHAGIA [None]
